FAERS Safety Report 18535649 (Version 5)
Quarter: 2022Q2

REPORT INFORMATION
  Report Type: Spontaneous
  Country: US (occurrence: US)
  Receive Date: 20201123
  Receipt Date: 20220517
  Transmission Date: 20220721
  Serious: No
  Sender: FDA-Public Use
  Company Number: US-PFIZER INC-2020455778

PATIENT
  Age: 70 Year
  Sex: Female

DRUGS (4)
  1. CELECOXIB [Suspect]
     Active Substance: CELECOXIB
     Indication: Osteoarthritis
     Dosage: 200 MG, 2X/DAY
     Route: 048
  2. CELECOXIB [Suspect]
     Active Substance: CELECOXIB
     Indication: Back pain
  3. CELECOXIB [Suspect]
     Active Substance: CELECOXIB
     Indication: Arthralgia
  4. TYLENOL [Concomitant]
     Active Substance: ACETAMINOPHEN
     Dosage: UNK

REACTIONS (9)
  - Drug ineffective [Unknown]
  - Arthritis [Recovered/Resolved]
  - Arthralgia [Recovered/Resolved]
  - Burning sensation [Recovered/Resolved]
  - Joint swelling [Recovered/Resolved]
  - Oedema [Recovered/Resolved]
  - Pain in extremity [Recovered/Resolved]
  - Gait disturbance [Unknown]
  - Drug hypersensitivity [Unknown]
